FAERS Safety Report 21334950 (Version 1)
Quarter: 2022Q3

REPORT INFORMATION
  Report Type: Spontaneous
  Country: US (occurrence: None)
  Receive Date: 20220914
  Receipt Date: 20220914
  Transmission Date: 20221027
  Serious: Yes (Hospitalization)
  Sender: FDA-Public Use
  Company Number: None

PATIENT
  Age: 43 Year
  Sex: Female

DRUGS (1)
  1. HUMIRA [Suspect]
     Active Substance: ADALIMUMAB
     Indication: Psoriasis
     Dosage: 40MG OTHER SUBCUTANEOUS
     Route: 058
     Dates: start: 202009

REACTIONS (8)
  - Musculoskeletal stiffness [None]
  - Hypoaesthesia [None]
  - Pain in extremity [None]
  - Dehydration [None]
  - Hypokalaemia [None]
  - Diarrhoea [None]
  - Vomiting [None]
  - Colitis [None]

NARRATIVE: CASE EVENT DATE: 20220821
